FAERS Safety Report 21908535 (Version 5)
Quarter: 2023Q2

REPORT INFORMATION
  Report Type: Spontaneous
  Country: US (occurrence: US)
  Receive Date: 20230125
  Receipt Date: 20230407
  Transmission Date: 20230722
  Serious: No
  Sender: FDA-Public Use
  Company Number: US-PFIZER INC-202300024539

PATIENT
  Age: 15 Year
  Sex: Male
  Weight: 66.22 kg

DRUGS (1)
  1. GENOTROPIN [Suspect]
     Active Substance: SOMATROPIN
     Indication: Blood growth hormone
     Dosage: 3.2 MG, DAILY (EVERY NIGHT, ROUTE: ARMS LEGS)

REACTIONS (7)
  - Device difficult to use [Unknown]
  - Device breakage [Unknown]
  - Device issue [Unknown]
  - Device information output issue [Unknown]
  - Drug dose omission by device [Unknown]
  - Expired device used [Unknown]
  - Product administered at inappropriate site [Unknown]
